FAERS Safety Report 11682888 (Version 1)
Quarter: 2015Q4

REPORT INFORMATION
  Report Type: Spontaneous
  Country: FR (occurrence: FR)
  Receive Date: 20151029
  Receipt Date: 20151029
  Transmission Date: 20160304
  Serious: Yes (Hospitalization)
  Sender: FDA-Public Use
  Company Number: FR-INCYTE CORPORATION-2015IN005385

PATIENT
  Age: 76 Year
  Sex: Male

DRUGS (3)
  1. HYDREA [Suspect]
     Active Substance: HYDROXYUREA
     Indication: SPLENOMEGALY
     Dosage: UNK
     Route: 065
     Dates: end: 20121210
  2. HYDREA [Suspect]
     Active Substance: HYDROXYUREA
     Dosage: UNKNOWN
     Route: 065
     Dates: start: 20150223
  3. JAKAFI [Suspect]
     Active Substance: RUXOLITINIB
     Indication: SPLENOMEGALY
     Dosage: 15 MG, BID
     Route: 048
     Dates: start: 20121210

REACTIONS (1)
  - Squamous cell carcinoma [Not Recovered/Not Resolved]

NARRATIVE: CASE EVENT DATE: 201303
